FAERS Safety Report 5481768-2 (Version None)
Quarter: 2007Q3

REPORT INFORMATION
  Report Type: 
  Country: None (occurrence: None)
  Receive Date: 20070917
  Receipt Date: 20060821
  Transmission Date: 20080115
  Serious: Yes (Other)
  Sender: FDA-Public Use
  Company Number: S06-USA-03416-01

PATIENT
  Age: 84 Year
  Sex: Male

DRUGS (10)
  1. CITALOPRAM HYDROBROMIDE [Suspect]
     Dosage: 20 MG QD PO
     Route: 048
     Dates: start: 20051001
  2. TOPROL-XL [Concomitant]
  3. FLOMAX [Concomitant]
  4. VASOTEC [Concomitant]
  5. VYTORIN [Concomitant]
  6. AGGRENOX [Concomitant]
  7. PROSCAR [Concomitant]
  8. OMACOR [Concomitant]
  9. DIGOXIN [Concomitant]
  10. CENTRUM [Concomitant]

REACTIONS (1)
  - TRANSIENT ISCHAEMIC ATTACK [None]
